FAERS Safety Report 14607625 (Version 2)
Quarter: 2018Q1

REPORT INFORMATION
  Report Type: Spontaneous
  Country: JP (occurrence: JP)
  Receive Date: 20180307
  Receipt Date: 20180314
  Transmission Date: 20180509
  Serious: Yes (Other)
  Sender: FDA-Public Use
  Company Number: PHJP2018JP003278

PATIENT
  Age: 65 Year
  Sex: Female

DRUGS (1)
  1. FLUORESCITE [Suspect]
     Active Substance: FLUORESCEIN SODIUM
     Indication: ANGIOGRAM RETINA
     Dosage: 250 MG, ONCE/SINGLE
     Route: 040
     Dates: start: 20180208, end: 20180208

REACTIONS (9)
  - Rash [Recovering/Resolving]
  - Sneezing [Unknown]
  - Hypersensitivity [Recovered/Resolved]
  - Angioedema [Unknown]
  - Flushing [Unknown]
  - Pruritus [Unknown]
  - Urticaria [Unknown]
  - Erythema [Unknown]
  - Feeling hot [Unknown]

NARRATIVE: CASE EVENT DATE: 20180208
